FAERS Safety Report 5165091-1 (Version None)
Quarter: 2006Q4

REPORT INFORMATION
  Report Type: 
  Country: None (occurrence: None)
  Receive Date: 20061127
  Receipt Date: 20061115
  Transmission Date: 20070319
  Serious: Yes (Death, Life-Threatening, Hospitalization)
  Sender: FDA-Public Use
  Company Number: 15183

PATIENT
  Age: 84 Year
  Sex: Male

DRUGS (2)
  1. CYTARABINE [Suspect]
     Indication: ACUTE MYELOID LEUKAEMIA
     Dosage: 20 MG/M2 QD SC
     Route: 058
     Dates: start: 20060809, end: 20060818
  2. CYTARABINE [Suspect]
     Indication: ACUTE MYELOID LEUKAEMIA
     Dosage: 20 MG/M2 QD SC
     Route: 058
     Dates: start: 20060906, end: 20060915

REACTIONS (9)
  - ACUTE RESPIRATORY DISTRESS SYNDROME [None]
  - ASTHENIA [None]
  - FEBRILE NEUTROPENIA [None]
  - HAEMOGLOBIN DECREASED [None]
  - HYPOXIA [None]
  - PNEUMONIA [None]
  - RED BLOOD CELL COUNT DECREASED [None]
  - RESPIRATORY FAILURE [None]
  - WHITE BLOOD CELL COUNT DECREASED [None]
